FAERS Safety Report 16020967 (Version 1)
Quarter: 2019Q1

REPORT INFORMATION
  Report Type: Report from Study
  Country: None (occurrence: US)
  Receive Date: 20190301
  Receipt Date: 20190301
  Transmission Date: 20190418
  Serious: Yes (Other)
  Sender: FDA-Public Use
  Company Number: US-ABBVIE-19S-163-2681915-00

PATIENT
  Age: 68 Year
  Sex: Female

DRUGS (1)
  1. CREON [Suspect]
     Active Substance: PANCRELIPASE AMYLASE\PANCRELIPASE LIPASE\PANCRELIPASE PROTEASE
     Indication: PRODUCT USED FOR UNKNOWN INDICATION
     Route: 048

REACTIONS (17)
  - Aggression [Unknown]
  - Eye swelling [Unknown]
  - Limb deformity [Unknown]
  - Concussion [Unknown]
  - Cerebral haemorrhage [Unknown]
  - Eye haematoma [Unknown]
  - Contusion [Unknown]
  - Eye operation [Unknown]
  - Intervertebral disc operation [Unknown]
  - Injection [Unknown]
  - Eczema [Unknown]
  - Eye operation [Unknown]
  - Eye contusion [Unknown]
  - Rotator cuff syndrome [Unknown]
  - Facial bones fracture [Unknown]
  - Nasal septum haematoma [Unknown]
  - Brain injury [Unknown]

NARRATIVE: CASE EVENT DATE: 20160912
